FAERS Safety Report 8345172-1 (Version None)
Quarter: 2012Q2

REPORT INFORMATION
  Report Type: 
  Country: None (occurrence: None)
  Receive Date: 20120508
  Receipt Date: 20120503
  Transmission Date: 20120825
  Serious: Yes (Other)
  Sender: FDA-Public Use
  Company Number: PHHY2012AT038071

PATIENT
  Age: 63 Year
  Sex: Female

DRUGS (7)
  1. NOMEXOR PLUS HCT [Concomitant]
  2. ASPIRIN [Concomitant]
  3. ITERIUM [Concomitant]
  4. CRATAEGUTT                              /GFR/ [Concomitant]
  5. LEVOTHYROXINE SODIUM [Concomitant]
  6. METOPROLOL TARTRATE [Suspect]
     Dosage: 95 MG, DAILY
     Dates: start: 20120203, end: 20120205
  7. ENALAPRIL MALEATE AND HYDROCHLOROTHIAZIDE [Concomitant]

REACTIONS (3)
  - SLEEP DISORDER [None]
  - NIGHTMARE [None]
  - PALPITATIONS [None]
